FAERS Safety Report 12631530 (Version 2)
Quarter: 2016Q3

REPORT INFORMATION
  Report Type: Spontaneous
  Country: US (occurrence: US)
  Receive Date: 20160808
  Receipt Date: 20160808
  Transmission Date: 20161109
  Serious: No
  Sender: FDA-Public Use
  Company Number: US-BEH-2015054486

PATIENT
  Sex: Male
  Weight: 104 kg

DRUGS (26)
  1. HIZENTRA [Suspect]
     Active Substance: HUMAN IMMUNOGLOBULIN G
     Indication: IMMUNODEFICIENCY COMMON VARIABLE
     Route: 058
  2. EPIPEN [Concomitant]
     Active Substance: EPINEPHRINE
     Indication: ANAPHYLACTIC REACTION
  3. HUMALOG [Concomitant]
     Active Substance: INSULIN LISPRO
  4. AMARYL [Concomitant]
     Active Substance: GLIMEPIRIDE
  5. ASPIRIN. [Concomitant]
     Active Substance: ASPIRIN
  6. BENICAR [Concomitant]
     Active Substance: OLMESARTAN MEDOXOMIL
  7. DIPHENHYDRAMINE. [Concomitant]
     Active Substance: DIPHENHYDRAMINE
     Indication: ANAPHYLACTIC REACTION
  8. ZETIA [Concomitant]
     Active Substance: EZETIMIBE
  9. LMX [Concomitant]
     Active Substance: LIDOCAINE
  10. MAG-G [Concomitant]
     Active Substance: MAGNESIUM GLUCONATE
  11. ACTOS [Concomitant]
     Active Substance: PIOGLITAZONE HYDROCHLORIDE
  12. LANTUS [Concomitant]
     Active Substance: INSULIN GLARGINE
  13. VALIUM [Concomitant]
     Active Substance: DIAZEPAM
  14. LIDOCAINE/PRILOCAINE [Concomitant]
     Active Substance: LIDOCAINE\PRILOCAINE
  15. LEVAQUIN [Concomitant]
     Active Substance: LEVOFLOXACIN
  16. CENTRUM SILVER [Concomitant]
     Active Substance: MINERALS\VITAMINS
  17. ULTRAM [Concomitant]
     Active Substance: TRAMADOL HYDROCHLORIDE
  18. FISH OIL [Concomitant]
     Active Substance: FISH OIL
  19. TYLENOL [Concomitant]
     Active Substance: ACETAMINOPHEN
  20. TRICOR [Concomitant]
     Active Substance: FENOFIBRATE
  21. ALLOPURINOL. [Concomitant]
     Active Substance: ALLOPURINOL
  22. HIZENTRA [Suspect]
     Active Substance: HUMAN IMMUNOGLOBULIN G
     Indication: IMMUNODEFICIENCY
     Route: 058
  23. COLCRYS [Concomitant]
     Active Substance: COLCHICINE
  24. ENZYME PREPARATIONS [Concomitant]
  25. VITAMIN D3 [Concomitant]
     Active Substance: CHOLECALCIFEROL
  26. QUININE [Concomitant]
     Active Substance: QUININE

REACTIONS (1)
  - Dermatitis [Unknown]
